FAERS Safety Report 24468401 (Version 1)
Quarter: 2024Q4

REPORT INFORMATION
  Report Type: Spontaneous
  Country: JP (occurrence: JP)
  Receive Date: 20241018
  Receipt Date: 20241018
  Transmission Date: 20250115
  Serious: Yes (Hospitalization, Other)
  Sender: MERCK
  Company Number: JP-MSD-M2024-41366

PATIENT
  Sex: Female

DRUGS (1)
  1. KEYTRUDA [Suspect]
     Active Substance: PEMBROLIZUMAB
     Indication: Ameloblastic carcinoma
     Dosage: 200 MILLIGRAM, Q3W
     Route: 041
     Dates: start: 20220822, end: 20240531

REACTIONS (3)
  - Cardiac failure [Recovered/Resolved]
  - Cardiac ventricular thrombosis [Unknown]
  - Myocarditis [Unknown]

NARRATIVE: CASE EVENT DATE: 20240712
